FAERS Safety Report 22659403 (Version 1)
Quarter: 2023Q2

REPORT INFORMATION
  Report Type: Spontaneous
  Country: GB (occurrence: GB)
  Receive Date: 20230630
  Receipt Date: 20230630
  Transmission Date: 20230721
  Serious: Yes (Hospitalization, Other)
  Sender: FDA-Public Use
  Company Number: GB-CELLTRION INC.-2023GB012737

PATIENT

DRUGS (1)
  1. INFLIXIMAB [Suspect]
     Active Substance: INFLIXIMAB
     Indication: Crohn^s disease
     Dosage: 120MG PRE FILLED PEN PK2
     Route: 058
     Dates: start: 202209

REACTIONS (5)
  - Carditis [Unknown]
  - Ill-defined disorder [Unknown]
  - Myocardial infarction [Unknown]
  - Pain [Unknown]
  - COVID-19 [Unknown]
